FAERS Safety Report 8149314-2 (Version None)
Quarter: 2012Q1

REPORT INFORMATION
  Report Type: 
  Country: None (occurrence: None)
  Receive Date: 20120218
  Receipt Date: 20110927
  Transmission Date: 20120608
  Serious: No
  Sender: FDA-Public Use
  Company Number: US-ALLERGAN-1112812US

PATIENT
  Age: 25 Year
  Sex: Female

DRUGS (3)
  1. BOTOX COSMETIC [Suspect]
     Indication: SKIN WRINKLING
     Dosage: 20 UNITS, SINGLE
     Route: 030
     Dates: start: 20110921, end: 20110921
  2. MULTI-VITAMINS [Concomitant]
     Indication: PRODUCT USED FOR UNKNOWN INDICATION
  3. ANTIVERT                           /00007101/ [Concomitant]
     Indication: VERTIGO

REACTIONS (6)
  - HYPERHIDROSIS [None]
  - COLD SWEAT [None]
  - CIRCULATORY COLLAPSE [None]
  - DYSPNOEA [None]
  - DIZZINESS [None]
  - ASTHENIA [None]
